FAERS Safety Report 24724657 (Version 2)
Quarter: 2025Q1

REPORT INFORMATION
  Report Type: Report from Study
  Country: US (occurrence: US)
  Receive Date: 20241212
  Receipt Date: 20250220
  Transmission Date: 20250408
  Serious: No
  Sender: DECIPHERA PHARMACEUTICALS
  Company Number: US-DECIPHERA PHARMACEUTICALS LLC-2024US000963

PATIENT
  Age: 90 Year
  Sex: Female
  Weight: 53.2 kg

DRUGS (1)
  1. QINLOCK [Suspect]
     Active Substance: RIPRETINIB
     Indication: Soft tissue sarcoma
     Dosage: 50 MILLIGRAM, QD
     Route: 048
     Dates: start: 20240416

REACTIONS (4)
  - Pain [Unknown]
  - Constipation [Unknown]
  - Underdose [Unknown]
  - Product use in unapproved indication [Unknown]

NARRATIVE: CASE EVENT DATE: 20240101
